FAERS Safety Report 8953168 (Version 1)
Quarter: 2012Q4

REPORT INFORMATION
  Report Type: Report from Study
  Country: GB (occurrence: GB)
  Receive Date: 20121205
  Receipt Date: 20121205
  Transmission Date: 20130627
  Serious: Yes (Other)
  Sender: FDA-Public Use
  Company Number: GB-B.I. PHARMACEUTICALS,INC./RIDGEFIELD-2012-UK-01857UK

PATIENT
  Age: 61 Year
  Sex: Male
  Weight: 68.6 kg

DRUGS (8)
  1. BIBW-2992 [Suspect]
     Indication: LUNG NEOPLASM MALIGNANT
     Dosage: 40 mg
     Route: 048
     Dates: start: 20121003, end: 20121126
  2. CARBOPLATIN [Suspect]
     Indication: LUNG NEOPLASM MALIGNANT
     Dosage: 475.5 mg
     Route: 042
     Dates: start: 20121002
  3. PACLITAXEL [Suspect]
     Indication: LUNG NEOPLASM MALIGNANT
     Dosage: 332.5 mg
     Route: 042
     Dates: start: 20121002
  4. SIMVASTATIN [Concomitant]
     Indication: HYPERCHOLESTEROLAEMIA
     Dosage: 40 mg
     Route: 048
     Dates: start: 2007
  5. BISOPROLOL [Concomitant]
     Indication: HYPERTENSION
     Dosage: 2.5 mg
     Route: 048
     Dates: start: 2007
  6. FELODIPINE [Concomitant]
     Indication: HYPERTENSION
     Dosage: 2.5 mg
     Route: 048
     Dates: start: 2011
  7. CHLORHEXIDINE MOUTH WASH [Concomitant]
     Indication: PROPHYLAXIS
     Dosage: 20 ml
     Route: 048
     Dates: start: 20121003
  8. LOPERAMIDE [Concomitant]
     Indication: DIARRHOEA
     Dosage: 2 mg
     Route: 048
     Dates: start: 20121007

REACTIONS (3)
  - Neutropenia [Not Recovered/Not Resolved]
  - White blood cell count decreased [Not Recovered/Not Resolved]
  - Fatigue [Not Recovered/Not Resolved]
